FAERS Safety Report 19990750 (Version 7)
Quarter: 2022Q2

REPORT INFORMATION
  Report Type: Report from Study
  Country: US (occurrence: US)
  Receive Date: 20211025
  Receipt Date: 20220507
  Transmission Date: 20220721
  Serious: Yes (Hospitalization, Other)
  Sender: FDA-Public Use
  Company Number: US-NOVARTISTESTPH-NVSC2021US242257

PATIENT
  Age: 59 Year
  Sex: Male

DRUGS (2)
  1. ENTRESTO [Suspect]
     Active Substance: SACUBITRIL\VALSARTAN
     Indication: Cardiac failure
     Dosage: 0.5 DOSAGE FORM, BID (12/13 MG)
     Route: 048
     Dates: start: 20210113, end: 20220404
  2. WARFARIN [Suspect]
     Active Substance: WARFARIN
     Indication: Product used for unknown indication
     Dosage: 7.5 MG
     Route: 048

REACTIONS (8)
  - COVID-19 [Unknown]
  - Oedema [Unknown]
  - Chest injury [Unknown]
  - Joint injury [Unknown]
  - Fall [Recovering/Resolving]
  - Dizziness [Recovering/Resolving]
  - Weight decreased [Unknown]
  - Wrong technique in product usage process [Not Recovered/Not Resolved]

NARRATIVE: CASE EVENT DATE: 20220101
